FAERS Safety Report 15160432 (Version 1)
Quarter: 2018Q3

REPORT INFORMATION
  Report Type: Spontaneous
  Country: GB (occurrence: GB)
  Receive Date: 20180718
  Receipt Date: 20180718
  Transmission Date: 20181010
  Serious: Yes (Hospitalization, Other)
  Sender: FDA-Public Use
  Company Number: GB-TEVA-2018-GB-928129

PATIENT
  Age: 64 Year
  Sex: Male

DRUGS (5)
  1. ZOPICLONE [Concomitant]
     Active Substance: ZOPICLONE
  2. GLYCOPYRRONIUM BROMIDE [Concomitant]
     Active Substance: GLYCOPYRRONIUM
  3. FLUOXETINE [Suspect]
     Active Substance: FLUOXETINE HYDROCHLORIDE
     Route: 048
     Dates: start: 20180312, end: 20180407
  4. RIVAROXABAN [Concomitant]
     Active Substance: RIVAROXABAN
  5. RILUZOLE. [Concomitant]
     Active Substance: RILUZOLE

REACTIONS (1)
  - Blood sodium decreased [Recovered/Resolved]
